FAERS Safety Report 7668073-0 (Version None)
Quarter: 2011Q3

REPORT INFORMATION
  Report Type: 
  Country: None (occurrence: None)
  Receive Date: 20110803
  Receipt Date: 20110630
  Transmission Date: 20111222
  Serious: Yes (Other)
  Sender: FDA-Public Use
  Company Number: US-ACCORD-010113

PATIENT
  Age: 22 Year
  Sex: Female

DRUGS (5)
  1. PREDNISONE [Concomitant]
  2. TACROLIMUS [Concomitant]
  3. OMEPRAZOLE [Concomitant]
  4. FERROUS SULPHATE (FERROUS SULPHATE) [Concomitant]
  5. MYCOPHENOLATE MOFETIL [Suspect]

REACTIONS (4)
  - MATERNAL EXPOSURE DURING PREGNANCY [None]
  - SUICIDE ATTEMPT [None]
  - FAMILY STRESS [None]
  - INTENTIONAL OVERDOSE [None]
